FAERS Safety Report 5443311-3 (Version None)
Quarter: 2007Q3

REPORT INFORMATION
  Report Type: 
  Country: None (occurrence: None)
  Receive Date: 20070831
  Receipt Date: 20070831
  Transmission Date: 20080115
  Serious: Yes (Hospitalization, Disabling, Other)
  Sender: FDA-Public Use
  Company Number: None

PATIENT
  Age: 41 Year
  Sex: Male
  Weight: 87.5442 kg

DRUGS (4)
  1. ALLOPURINOL [Suspect]
     Indication: RENAL FAILURE CHRONIC
     Dosage: 300 MG
     Dates: start: 20070625, end: 20070808
  2. LISINOPRIL [Concomitant]
  3. PREDNISONE [Concomitant]
  4. ATENOLOL [Concomitant]

REACTIONS (7)
  - DRUG HYPERSENSITIVITY [None]
  - LYMPHADENOPATHY [None]
  - MUSCULOSKELETAL STIFFNESS [None]
  - PAIN [None]
  - PYREXIA [None]
  - RASH GENERALISED [None]
  - VIRAL INFECTION [None]
